FAERS Safety Report 8447904-0 (Version None)
Quarter: 2012Q2

REPORT INFORMATION
  Report Type: 
  Country: None (occurrence: None)
  Receive Date: 20120619
  Receipt Date: 20120614
  Transmission Date: 20120825
  Serious: No
  Sender: FDA-Public Use
  Company Number: US-TEVA-343781USA

PATIENT
  Sex: Female
  Weight: 77.18 kg

DRUGS (1)
  1. PLAN B ONE-STEP [Suspect]
     Indication: POST COITAL CONTRACEPTION
     Dosage: 1.5 MILLIGRAM;
     Route: 048
     Dates: start: 20120608, end: 20120608

REACTIONS (4)
  - ABDOMINAL PAIN [None]
  - MENSTRUATION IRREGULAR [None]
  - BREAST ENLARGEMENT [None]
  - DIZZINESS [None]
